FAERS Safety Report 16542998 (Version 2)
Quarter: 2019Q3

REPORT INFORMATION
  Report Type: Spontaneous
  Country: None (occurrence: AU)
  Receive Date: 20190709
  Receipt Date: 20190809
  Transmission Date: 20191004
  Serious: Yes (Death, Hospitalization)
  Sender: FDA-Public Use
  Company Number: AU-ORION CORPORATION ORION PHARMA-TREX2019-2257

PATIENT
  Sex: Male
  Weight: 50 kg

DRUGS (5)
  1. TORADOL [Concomitant]
     Active Substance: KETOROLAC TROMETHAMINE
     Route: 065
  2. METHOTREXATE. [Suspect]
     Active Substance: METHOTREXATE
     Indication: RHEUMATOID ARTHRITIS
     Route: 065
     Dates: start: 20090417, end: 20090422
  3. CELESTONE CHRONODOSE [Concomitant]
     Active Substance: BETAMETHASONE ACETATE\BETAMETHASONE SODIUM PHOSPHATE
     Route: 030
  4. METHOTREXATE. [Suspect]
     Active Substance: METHOTREXATE
     Route: 065
  5. CELEBREX [Concomitant]
     Active Substance: CELECOXIB
     Route: 065

REACTIONS (22)
  - Tuberculosis [Fatal]
  - White blood cell count decreased [Unknown]
  - Pancytopenia [Unknown]
  - Product prescribing error [Fatal]
  - Product dispensing error [Fatal]
  - Abdominal pain upper [Unknown]
  - Vomiting [Unknown]
  - Diarrhoea [Unknown]
  - Multiple organ dysfunction syndrome [Fatal]
  - Gastrointestinal haemorrhage [Fatal]
  - Inappropriate schedule of product administration [Fatal]
  - Mouth ulceration [Unknown]
  - Blood albumin decreased [Unknown]
  - Gastritis erosive [Unknown]
  - Toxicity to various agents [Fatal]
  - Immunosuppression [Fatal]
  - Hepatic function abnormal [Unknown]
  - Neutrophil percentage decreased [Unknown]
  - Pyrexia [Unknown]
  - Urinary tract infection [Unknown]
  - Coagulopathy [Unknown]
  - Sepsis [Fatal]

NARRATIVE: CASE EVENT DATE: 20090417
